FAERS Safety Report 4313121-9 (Version None)
Quarter: 2004Q1

REPORT INFORMATION
  Report Type: 
  Country: None (occurrence: None)
  Receive Date: 20040305
  Receipt Date: 20040305
  Transmission Date: 20041129
  Serious: Yes (Hospitalization)
  Sender: FDA-Public Use
  Company Number: None

PATIENT
  Age: 48 Year
  Sex: Female

DRUGS (5)
  1. INDOCIN [Suspect]
     Dosage: 50 MG TID PRN
     Dates: start: 20040130, end: 20040205
  2. BUPROPION HCL [Concomitant]
  3. BUSPAR [Concomitant]
  4. ESTRINE [Concomitant]
  5. VIT B12 [Concomitant]

REACTIONS (5)
  - ANURIA [None]
  - MARKEDLY REDUCED DIETARY INTAKE [None]
  - NAUSEA [None]
  - RENAL FAILURE [None]
  - VOMITING [None]
